FAERS Safety Report 25767972 (Version 1)
Quarter: 2025Q3

REPORT INFORMATION
  Report Type: Spontaneous
  Country: US (occurrence: US)
  Receive Date: 20250905
  Receipt Date: 20250905
  Transmission Date: 20251020
  Serious: No
  Sender: DOMPE FARMACEUTICI
  Company Number: US-FARMAPROD-202505-1713

PATIENT
  Sex: Female
  Weight: 86.82 kg

DRUGS (4)
  1. OXERVATE [Suspect]
     Active Substance: CENEGERMIN-BKBJ
     Indication: Neurotrophic keratopathy
     Route: 047
     Dates: start: 20250505
  2. PREDNISOLONE [Concomitant]
     Active Substance: PREDNISOLONE
  3. RESTASIS [Concomitant]
     Active Substance: CYCLOSPORINE
  4. LOTEPREDNOL ETABONATE [Concomitant]
     Active Substance: LOTEPREDNOL ETABONATE

REACTIONS (2)
  - Eye pain [Unknown]
  - Product dose omission issue [Unknown]
